FAERS Safety Report 4923553-3 (Version None)
Quarter: 2006Q1

REPORT INFORMATION
  Report Type: 
  Country: None (occurrence: None)
  Receive Date: 20060221
  Receipt Date: 20060207
  Transmission Date: 20060701
  Serious: Yes (Other)
  Sender: FDA-Public Use
  Company Number: 2006019292

PATIENT
  Age: 63 Year
  Sex: Male
  Weight: 74.8435 kg

DRUGS (8)
  1. LIPITOR [Suspect]
     Indication: BLOOD CHOLESTEROL
     Dosage: (80 MG)
     Dates: start: 20000101
  2. DILTIAZEM [Concomitant]
  3. TAMSULOSIN HYDROCHLORIDE (TAMSULOSIN HYDROCHLORIDE) [Concomitant]
  4. ECOTRIN (ACETYLSALICYLIC ACID) [Concomitant]
  5. PLAVIX [Concomitant]
  6. ADVAIR DISKUS 100/50 [Concomitant]
  7. SPIRIVA [Concomitant]
  8. ALBUTEROL [Concomitant]

REACTIONS (2)
  - MUSCULOSKELETAL CHEST PAIN [None]
  - STENT OCCLUSION [None]
